FAERS Safety Report 8246288-0 (Version None)
Quarter: 2012Q1

REPORT INFORMATION
  Report Type: 
  Country: None (occurrence: None)
  Receive Date: 20120330
  Receipt Date: 20120321
  Transmission Date: 20120608
  Serious: Yes (Death, Life-Threatening, Hospitalization, Other)
  Sender: FDA-Public Use
  Company Number: JP-GENZYME-THYM-1003019

PATIENT
  Sex: Male
  Weight: 73 kg

DRUGS (15)
  1. FLUDARABINE PHOSPHATE [Concomitant]
     Indication: PREMEDICATION
     Dosage: UNK
     Route: 065
     Dates: start: 20110707, end: 20110710
  2. MEROPENEM [Concomitant]
     Indication: ANTIBIOTIC PROPHYLAXIS
     Dosage: UNK
     Route: 065
     Dates: start: 20110804, end: 20110915
  3. TACROLIMUS [Concomitant]
     Indication: PROPHYLAXIS AGAINST GRAFT VERSUS HOST DISEASE
     Dosage: UNK
     Route: 065
     Dates: start: 20110710, end: 20110813
  4. GRANISETRON HCL [Concomitant]
     Indication: PROPHYLAXIS OF NAUSEA AND VOMITING
     Dosage: UNK
     Route: 065
     Dates: start: 20110705, end: 20110706
  5. PANIPENEM [Concomitant]
     Indication: ANTIBIOTIC PROPHYLAXIS
     Dosage: UNK
     Route: 065
     Dates: start: 20110721, end: 20110830
  6. METHOTREXATE [Concomitant]
     Indication: PROPHYLAXIS AGAINST GRAFT VERSUS HOST DISEASE
     Dosage: UNK
     Route: 065
     Dates: start: 20110714, end: 20110716
  7. THYMOGLOBULIN [Suspect]
     Indication: BONE MARROW CONDITIONING REGIMEN
     Dosage: 80 MG, QD
     Route: 042
     Dates: start: 20110710, end: 20110711
  8. MICAFUNGIN SODIUM [Concomitant]
     Indication: ANTIFUNGAL PROPHYLAXIS
     Dosage: UNK
     Route: 065
     Dates: start: 20110710, end: 20110826
  9. FILGRASTIM [Concomitant]
     Indication: INFECTION PROPHYLAXIS
     Dosage: UNK
     Route: 065
     Dates: start: 20110730, end: 20110904
  10. GANCICLOVIR [Concomitant]
     Indication: ANTIVIRAL PROPHYLAXIS
     Dosage: UNK
     Route: 065
     Dates: start: 20110703, end: 20110708
  11. CYTARABINE [Concomitant]
     Indication: PREMEDICATION
     Dosage: UNK
     Route: 065
     Dates: start: 20110705, end: 20110706
  12. GLYCYRRHIZA EXTRACT [Concomitant]
     Indication: PROPHYLAXIS
     Dosage: UNK
     Dates: start: 20110703
  13. METHYLPREDNISOLONE SODIUM SUCCINATE [Concomitant]
     Indication: PREMEDICATION
     Dosage: UNK
     Route: 065
  14. MELPHALAN HYDROCHLORIDE [Concomitant]
     Indication: PREMEDICATION
     Dosage: UNK
     Route: 065
     Dates: start: 20110709, end: 20110710
  15. PANIPENEM [Concomitant]
     Indication: SEPSIS

REACTIONS (5)
  - ADENOVIRAL HAEMORRHAGIC CYSTITIS [None]
  - DISSEMINATED INTRAVASCULAR COAGULATION [None]
  - BRONCHOPULMONARY ASPERGILLOSIS [None]
  - ACUTE GRAFT VERSUS HOST DISEASE [None]
  - ENGRAFT FAILURE [None]
